FAERS Safety Report 6888637-1 (Version None)
Quarter: 2010Q3

REPORT INFORMATION
  Report Type: 
  Country: None (occurrence: None)
  Receive Date: 20100730
  Receipt Date: 20061018
  Transmission Date: 20110219
  Serious: Yes (Other)
  Sender: FDA-Public Use
  Company Number: US-PFIZER INC-2006104969

PATIENT
  Sex: Male
  Weight: 83.91 kg

DRUGS (2)
  1. SINEQUAN [Suspect]
     Indication: ARTHRALGIA
     Dates: end: 20060825
  2. LIPITOR [Concomitant]
     Route: 065
     Dates: start: 20050101

REACTIONS (1)
  - GYNAECOMASTIA [None]
